FAERS Safety Report 16306837 (Version 1)
Quarter: 2019Q2

REPORT INFORMATION
  Report Type: Report from Study
  Country: MX (occurrence: MX)
  Receive Date: 20190513
  Receipt Date: 20190513
  Transmission Date: 20190711
  Serious: Yes (Other)
  Sender: FDA-Public Use
  Company Number: PHHY2019MX107936

PATIENT
  Sex: Female
  Weight: 48 kg

DRUGS (1)
  1. DUOTRAV (ALC) [Suspect]
     Active Substance: TIMOLOL MALEATE\TRAVOPROST
     Indication: GLAUCOMA
     Dosage: 1 DF, QD, (STARTED APPROXIMATELY FOUR YEARS AGO)
     Route: 047

REACTIONS (1)
  - Deafness [Unknown]
